FAERS Safety Report 7330650-4 (Version None)
Quarter: 2011Q1

REPORT INFORMATION
  Report Type: 
  Country: None (occurrence: None)
  Receive Date: 20110304
  Receipt Date: 20110222
  Transmission Date: 20110831
  Serious: Yes (Other)
  Sender: FDA-Public Use
  Company Number: GB-TEVA-269122ISR

PATIENT
  Age: 68 Year
  Sex: Male

DRUGS (2)
  1. GABAPENTIN [Suspect]
     Indication: NEURALGIA
     Route: 048
     Dates: start: 20070701, end: 20110210
  2. LENALIDOMIDE [Suspect]
     Indication: MYELOMA RECURRENCE
     Route: 048
     Dates: start: 20091001, end: 20100902

REACTIONS (3)
  - AUTOIMMUNE THROMBOCYTOPENIA [None]
  - PETECHIAE [None]
  - PLATELET COUNT DECREASED [None]
